FAERS Safety Report 13560919 (Version 2)
Quarter: 2017Q2

REPORT INFORMATION
  Report Type: Report from Study
  Country: JP (occurrence: JP)
  Receive Date: 20170518
  Receipt Date: 20170609
  Transmission Date: 20170830
  Serious: Yes (Hospitalization)
  Sender: FDA-Public Use
  Company Number: JP-UCBSA-2017018292

PATIENT
  Age: 70 Year
  Sex: Male
  Weight: 89 kg

DRUGS (4)
  1. CERCINE [Concomitant]
     Active Substance: DIAZEPAM
     Indication: PARTIAL SEIZURES WITH SECONDARY GENERALISATION
     Dosage: 10 MG, ONCE DAILY (QD)
     Route: 042
     Dates: start: 20170213, end: 20170215
  2. LEVETIRACETAM. [Suspect]
     Active Substance: LEVETIRACETAM
     Indication: PARTIAL SEIZURES WITH SECONDARY GENERALISATION
     Dosage: 250 MG, ONCE DAILY (QD)
     Route: 041
     Dates: start: 20170213, end: 20170216
  3. PHENOBAL [Concomitant]
     Active Substance: PHENOBARBITAL
     Indication: PARTIAL SEIZURES WITH SECONDARY GENERALISATION
     Dosage: 100 MG, ONCE DAILY (QD)
     Route: 042
     Dates: start: 20170213, end: 20170213
  4. FUROSEMIDE. [Concomitant]
     Active Substance: FUROSEMIDE
     Indication: PRODUCT USED FOR UNKNOWN INDICATION
     Dosage: 20 MG, ONCE DAILY (QD)
     Route: 042
     Dates: start: 20170212, end: 20170216

REACTIONS (4)
  - Blood creatine phosphokinase increased [Unknown]
  - Inappropriate schedule of drug administration [Unknown]
  - Hyponatraemia [Unknown]
  - Prescribed underdose [Unknown]

NARRATIVE: CASE EVENT DATE: 20170213
